FAERS Safety Report 23721958 (Version 1)
Quarter: 2024Q2

REPORT INFORMATION
  Report Type: Report from Study
  Country: US (occurrence: US)
  Receive Date: 20240409
  Receipt Date: 20240409
  Transmission Date: 20240716
  Serious: Yes (Other)
  Sender: FDA-Public Use
  Company Number: US-MYLANLABS-2022M1051649

PATIENT
  Age: 38 Year
  Sex: Female
  Weight: 58.95 kg

DRUGS (2)
  1. GLATIRAMER ACETATE [Suspect]
     Active Substance: GLATIRAMER ACETATE
     Indication: Relapsing-remitting multiple sclerosis
     Dosage: 40 MILLIGRAM, 3XW
     Route: 058
  2. GLATIRAMER ACETATE [Suspect]
     Active Substance: GLATIRAMER ACETATE
     Indication: Multiple sclerosis
     Dosage: 40 MILLIGRAM, 3XW
     Route: 058

REACTIONS (16)
  - Near death experience [Unknown]
  - Neurological symptom [Unknown]
  - Head discomfort [Unknown]
  - Hypoaesthesia [Unknown]
  - Panic reaction [Unknown]
  - Blood pressure increased [Unknown]
  - Feeling abnormal [Unknown]
  - Fear [Unknown]
  - Skin reaction [Unknown]
  - Dizziness [Unknown]
  - Speech disorder [Unknown]
  - Body temperature increased [Unknown]
  - Dyspnoea [Unknown]
  - Flushing [Unknown]
  - Hypoacusis [Unknown]
  - Stress [Unknown]

NARRATIVE: CASE EVENT DATE: 20220407
